FAERS Safety Report 5128587-4 (Version None)
Quarter: 2006Q4

REPORT INFORMATION
  Report Type: 
  Country: None (occurrence: None)
  Receive Date: 20061017
  Receipt Date: 20061011
  Transmission Date: 20070319
  Serious: Yes (Hospitalization)
  Sender: FDA-Public Use
  Company Number: JP-JPN-A200604117

PATIENT
  Age: 79 Year
  Sex: Male
  Weight: 51 kg

DRUGS (8)
  1. VALTREX [Suspect]
     Indication: HERPES ZOSTER
     Dosage: 500MG PER DAY
     Route: 048
     Dates: start: 20061005, end: 20061009
  2. LANSOPRAZOLE [Concomitant]
     Route: 048
  3. CALTAN [Concomitant]
     Route: 048
  4. GLAKAY [Concomitant]
     Route: 048
  5. ALFAROL [Concomitant]
     Route: 048
  6. CHINESE MEDICATION [Concomitant]
     Route: 048
  7. LOXONIN [Concomitant]
     Route: 065
     Dates: start: 20061005
  8. ALLEGRA [Concomitant]
     Route: 048
     Dates: start: 20061005

REACTIONS (4)
  - CEREBRAL INFARCTION [None]
  - DELIRIUM [None]
  - DEPRESSED LEVEL OF CONSCIOUSNESS [None]
  - DIALYSIS [None]
